FAERS Safety Report 23832082 (Version 1)
Quarter: 2024Q2

REPORT INFORMATION
  Report Type: Spontaneous
  Country: US (occurrence: None)
  Receive Date: 20240507
  Receipt Date: 20240507
  Transmission Date: 20240716
  Serious: Yes (Hospitalization)
  Sender: FDA-Public Use
  Company Number: None

PATIENT
  Age: 96 Year
  Sex: Male
  Weight: 75.30 kg

DRUGS (3)
  1. METOPROLOL SUCCINATE [Suspect]
     Active Substance: METOPROLOL SUCCINATE
     Indication: Hypertension
     Dosage: FREQUENCY : TWICE A DAY;?
     Route: 048
     Dates: start: 20220127
  2. ISOSORBIDE MONONITRATE [Suspect]
     Active Substance: ISOSORBIDE MONONITRATE
     Dosage: FREQUENCY : DAILY;?
     Route: 048
     Dates: start: 20210224
  3. AMLODIPINE [Suspect]
     Active Substance: AMLODIPINE BESYLATE

REACTIONS (6)
  - Blood creatinine increased [None]
  - Hypotension [None]
  - Blood lactic acid increased [None]
  - Unresponsive to stimuli [None]
  - Blood pressure systolic increased [None]
  - Acute kidney injury [None]

NARRATIVE: CASE EVENT DATE: 20220731
